FAERS Safety Report 6651302-X (Version None)
Quarter: 2010Q1

REPORT INFORMATION
  Report Type: 
  Country: None (occurrence: None)
  Receive Date: 20100325
  Receipt Date: 20100319
  Transmission Date: 20100710
  Serious: Yes (Hospitalization)
  Sender: FDA-Public Use
  Company Number: US-SANOFI-AVENTIS-2010SA008373

PATIENT
  Age: 66 Year
  Sex: Male
  Weight: 76.4 kg

DRUGS (9)
  1. LOVENOX [Suspect]
     Indication: PROPHYLAXIS
     Dosage: PRESCRIBED AFTER DIAGNOSED WITH MILD STROKE
     Route: 058
     Dates: start: 20091220, end: 20100110
  2. LOVENOX [Suspect]
     Dosage: DISCHARGED TO HOME ON 120 MG QD
     Route: 058
     Dates: start: 20100110, end: 20100101
  3. LOVENOX [Suspect]
     Route: 065
     Dates: start: 20100101, end: 20100206
  4. LOVENOX [Suspect]
     Route: 065
     Dates: start: 20100206
  5. ZOLOFT [Concomitant]
     Indication: DEPRESSION
     Dates: start: 20091201
  6. IRON [Concomitant]
     Dates: start: 20091101, end: 20091231
  7. IRON [Concomitant]
     Dates: start: 20100101
  8. PRILOSEC [Concomitant]
     Indication: GASTRIC DISORDER
     Dates: start: 20091231
  9. THYROID TAB [Concomitant]

REACTIONS (3)
  - DEEP VEIN THROMBOSIS [None]
  - OEDEMA PERIPHERAL [None]
  - PAIN IN EXTREMITY [None]
